FAERS Safety Report 9066689 (Version 1)
Quarter: 2013Q1

REPORT INFORMATION
  Report Type: Report from Study
  Country: US (occurrence: US)
  Receive Date: 20130131
  Receipt Date: 20130131
  Transmission Date: 20140127
  Serious: No
  Sender: FDA-Public Use
  Company Number: US-ABBOTT-12P-163-1007955-00

PATIENT
  Age: 59 Year
  Sex: Female

DRUGS (8)
  1. HUMIRA [Suspect]
     Indication: CROHN^S DISEASE
     Route: 058
     Dates: start: 2010
  2. BYDUREON [Concomitant]
     Indication: TYPE 2 DIABETES MELLITUS
  3. METFORMIN [Concomitant]
     Indication: TYPE 2 DIABETES MELLITUS
  4. PAXIL [Concomitant]
     Indication: PRODUCT USED FOR UNKNOWN INDICATION
     Dosage: 20MG DAILY
  5. VYTORIN [Concomitant]
     Indication: BLOOD CHOLESTEROL
     Dosage: EVERY OTHER DAY
  6. FLEXERIL [Concomitant]
     Indication: PRODUCT USED FOR UNKNOWN INDICATION
     Dosage: EVERY PM
  7. VICODIN [Concomitant]
     Indication: MIGRAINE
  8. FIORICET [Concomitant]
     Indication: MIGRAINE

REACTIONS (2)
  - Osteopenia [Unknown]
  - Contraindication to vaccination [Unknown]
